FAERS Safety Report 17240977 (Version 2)
Quarter: 2020Q1

REPORT INFORMATION
  Report Type: Spontaneous
  Country: BE (occurrence: BE)
  Receive Date: 20200107
  Receipt Date: 20200211
  Transmission Date: 20200409
  Serious: Yes (Hospitalization)
  Sender: FDA-Public Use
  Company Number: BE-TEVA-2019-BE-1162804

PATIENT
  Age: 82 Year
  Sex: Male
  Weight: 72 kg

DRUGS (7)
  1. LIPITOR [Concomitant]
     Active Substance: ATORVASTATIN CALCIUM
     Dosage: 20 MG PER DAY
  2. ALDACTONE [Concomitant]
     Active Substance: SPIRONOLACTONE
     Dosage: 25 MG PER DAY
     Route: 048
  3. MAREVAN [Suspect]
     Active Substance: WARFARIN SODIUM
     Dosage: ONE DAY 0.25 DOSAGE FORM, ONE DAY 0.5 DOSAGE FORM
     Route: 048
  4. DICLOFENAC SODIUM. [Suspect]
     Active Substance: DICLOFENAC SODIUM
     Indication: RHEUMATIC DISORDER
     Dosage: NOT CLEAR - MIGHT BE HIGH DOSE
     Route: 030
  5. MEDROL [Suspect]
     Active Substance: METHYLPREDNISOLONE
     Dosage: 4 MG PER DAY
     Route: 048
  6. METFORMAX 850 MG [Concomitant]
     Active Substance: METFORMIN HYDROCHLORIDE
     Dosage: 1700 MG PER DAY
     Route: 048
  7. BISOPROLOL 2.5 MG [Concomitant]
     Active Substance: BISOPROLOL
     Dosage: 2.5 MG PER DAY
     Route: 048

REACTIONS (5)
  - Melaena [Recovering/Resolving]
  - Gastrointestinal ulcer [Recovering/Resolving]
  - Drug interaction [Recovering/Resolving]
  - Gastrooesophageal reflux disease [Recovering/Resolving]
  - Gastrointestinal haemorrhage [Recovering/Resolving]

NARRATIVE: CASE EVENT DATE: 20191109
